FAERS Safety Report 5363103-3 (Version None)
Quarter: 2007Q2

REPORT INFORMATION
  Report Type: 
  Country: None (occurrence: None)
  Receive Date: 20070615
  Receipt Date: 20070604
  Transmission Date: 20071010
  Serious: Yes (Hospitalization)
  Sender: FDA-Public Use
  Company Number: 2007-01674

PATIENT
  Age: 54 Year
  Sex: Male
  Weight: 101 kg

DRUGS (1)
  1. VELCADE [Suspect]
     Indication: MULTIPLE MYELOMA
     Dosage: 2.90 MG, UNK, INTRAVENOUS
     Route: 042
     Dates: start: 20070518

REACTIONS (4)
  - COUGH [None]
  - NASAL DISCOMFORT [None]
  - PHARYNGEAL ERYTHEMA [None]
  - PHARYNGOLARYNGEAL PAIN [None]
